FAERS Safety Report 7286784-6 (Version None)
Quarter: 2011Q1

REPORT INFORMATION
  Report Type: 
  Country: None (occurrence: None)
  Receive Date: 20110210
  Receipt Date: 20110131
  Transmission Date: 20110831
  Serious: Yes (Hospitalization)
  Sender: FDA-Public Use
  Company Number: JP-MERCK-1102USA00607

PATIENT
  Age: 84 Year
  Sex: Female

DRUGS (7)
  1. GASMOTIN [Concomitant]
     Dosage: DAILY DOSAGE UNKNOWN
     Route: 048
  2. FLUITRAN [Concomitant]
     Dosage: DAILY DOSAGE UNKNOWN
     Route: 048
  3. JANUVIA [Suspect]
     Indication: DIABETES MELLITUS
     Route: 048
     Dates: start: 20110113, end: 20110120
  4. AMLODIPINE BESYLATE [Concomitant]
     Dosage: DAILY DOSAGE UNKNOWN
     Route: 048
  5. GASCON [Concomitant]
     Dosage: DAILY DOSAGE UNKNOWN
     Route: 048
  6. MIYA BM [Concomitant]
     Dosage: DAILY DOSAGE UNKNOWN
     Route: 048
  7. BLOPRESS [Concomitant]
     Dosage: DAILY DOSAGE UNKNOWN
     Route: 048

REACTIONS (1)
  - LIVER DISORDER [None]
